FAERS Safety Report 6318339-1 (Version None)
Quarter: 2009Q3

REPORT INFORMATION
  Report Type: 
  Country: None (occurrence: None)
  Receive Date: 20090820
  Receipt Date: 20090820
  Transmission Date: 20100115
  Serious: Yes (Hospitalization)
  Sender: FDA-Public Use
  Company Number: None

PATIENT
  Age: 82 Year
  Sex: Male
  Weight: 81 kg

DRUGS (1)
  1. GALANTAMINE HYDROBROMIDE [Suspect]
     Indication: DEMENTIA
     Dosage: 16MG EVERYDAY PO
     Route: 048
     Dates: start: 20090805, end: 20090815

REACTIONS (3)
  - AGITATION [None]
  - CONFUSIONAL STATE [None]
  - URINARY INCONTINENCE [None]
